FAERS Safety Report 10190600 (Version 1)
Quarter: 2014Q2

REPORT INFORMATION
  Report Type: Spontaneous
  Country: US (occurrence: US)
  Receive Date: 20140523
  Receipt Date: 20140523
  Transmission Date: 20141212
  Serious: Yes (Other)
  Sender: FDA-Public Use
  Company Number: US-ROCHE-1404916

PATIENT
  Sex: Female

DRUGS (8)
  1. CYTOVENE [Suspect]
     Indication: CYTOMEGALOVIRUS INFECTION
     Dosage: CURRENT DOSE
     Route: 065
  2. CYTOVENE [Suspect]
     Indication: HIV INFECTION
     Dosage: FOR  7 DOSES
     Route: 065
  3. CYTOVENE [Suspect]
     Dosage: INITIAL DOSE
     Route: 065
  4. XANAX [Concomitant]
     Route: 065
  5. NORVASC [Concomitant]
     Route: 065
  6. CITALOPRAM [Concomitant]
     Route: 065
  7. SINGULAIR [Concomitant]
     Route: 065
  8. PROTONIX (UNITED STATES) [Concomitant]
     Route: 065

REACTIONS (2)
  - Renal failure [Unknown]
  - Disease progression [Unknown]
